FAERS Safety Report 5482992-5 (Version None)
Quarter: 2007Q4

REPORT INFORMATION
  Report Type: 
  Country: None (occurrence: None)
  Receive Date: 20071011
  Receipt Date: 20071010
  Transmission Date: 20080405
  Serious: No
  Sender: FDA-Public Use
  Company Number: US-BOEHRINGER INGELHEIM PHARMACEUTICALS, INC.-2007-BP-19792BP

PATIENT
  Sex: Female

DRUGS (7)
  1. CATAPRES-TTS-1 [Suspect]
     Indication: HYPERTENSION
     Route: 061
     Dates: start: 20070820
  2. COREG [Concomitant]
     Indication: CARDIAC DISORDER
  3. AVAPRO [Concomitant]
     Indication: CARDIAC DISORDER
  4. K [Concomitant]
  5. HYDROZOLINE [Concomitant]
  6. HYDROCHLOROTHIAZIDE [Concomitant]
     Indication: DIURETIC THERAPY
  7. SYNTHROID [Concomitant]
     Indication: THYROID DISORDER

REACTIONS (1)
  - BLOOD PRESSURE INADEQUATELY CONTROLLED [None]
